FAERS Safety Report 15923359 (Version 1)
Quarter: 2019Q1

REPORT INFORMATION
  Report Type: Report from Study
  Country: None (occurrence: AT)
  Receive Date: 20190206
  Receipt Date: 20190206
  Transmission Date: 20190417
  Serious: Yes (Hospitalization)
  Sender: FDA-Public Use
  Company Number: AT-ABBVIE-19S-009-2652976-00

PATIENT
  Sex: Male

DRUGS (1)
  1. DUODOPA [Suspect]
     Active Substance: CARBIDOPA\LEVODOPA
     Indication: PARKINSON^S DISEASE
     Dosage: 16 H THERAPY:  MD: 8ML CR DAYTIME: 2ML/H ED: 1ML
     Route: 050
     Dates: start: 20180305

REACTIONS (1)
  - Pneumonia [Recovering/Resolving]
